FAERS Safety Report 25663187 (Version 1)
Quarter: 2025Q3

REPORT INFORMATION
  Report Type: Spontaneous
  Country: US (occurrence: US)
  Receive Date: 20250811
  Receipt Date: 20250811
  Transmission Date: 20251020
  Serious: Yes (Other)
  Sender: NOVO NORDISK
  Company Number: US-NOVOPROD-1461269

PATIENT
  Age: 65 Year
  Sex: Female

DRUGS (5)
  1. CRESTOR [Concomitant]
     Active Substance: ROSUVASTATIN CALCIUM
     Indication: Blood cholesterol increased
     Dates: start: 2020
  2. ADENOSINE [Suspect]
     Active Substance: ADENOSINE
     Indication: Blood triglycerides increased
  3. ADENOSINE [Suspect]
     Active Substance: ADENOSINE
     Indication: Blood cholesterol increased
     Dates: start: 202504, end: 202505
  4. LIRAGLUTIDE [Suspect]
     Active Substance: LIRAGLUTIDE
  5. LIRAGLUTIDE [Suspect]
     Active Substance: LIRAGLUTIDE
     Indication: Type 2 diabetes mellitus

REACTIONS (6)
  - Foot fracture [Recovering/Resolving]
  - Fall [Not Recovered/Not Resolved]
  - Dizziness [Recovered/Resolved]
  - Muscular weakness [Recovered/Resolved]
  - Neck pain [Recovered/Resolved]
  - Drug interaction [Unknown]

NARRATIVE: CASE EVENT DATE: 20250401
